FAERS Safety Report 4902375-3 (Version None)
Quarter: 2006Q1

REPORT INFORMATION
  Report Type: 
  Country: None (occurrence: None)
  Receive Date: 20060207
  Receipt Date: 20060125
  Transmission Date: 20060701
  Serious: Yes (Life-Threatening)
  Sender: FDA-Public Use
  Company Number: US-AMGEN-US166355

PATIENT
  Sex: Female
  Weight: 85 kg

DRUGS (5)
  1. KEPIVANCE [Suspect]
     Indication: MUCOSAL INFLAMMATION
     Route: 042
     Dates: start: 20051226, end: 20060107
  2. NEUPOGEN [Concomitant]
  3. MYCELEX [Concomitant]
  4. FOLIC ACID [Concomitant]
  5. NYSTATIN [Concomitant]

REACTIONS (3)
  - NEUTROPENIC COLITIS [None]
  - RASH [None]
  - SKIN HYPERPIGMENTATION [None]
